FAERS Safety Report 6442479-X (Version None)
Quarter: 2009Q4

REPORT INFORMATION
  Report Type: 
  Country: None (occurrence: None)
  Receive Date: 20091117
  Receipt Date: 20091105
  Transmission Date: 20100525
  Serious: Yes (Other)
  Sender: FDA-Public Use
  Company Number: CH-BIOGENIDEC-2009BI016635

PATIENT
  Age: 40 Year
  Sex: Male
  Weight: 70 kg

DRUGS (4)
  1. TYSABRI [Suspect]
     Indication: MULTIPLE SCLEROSIS
     Route: 042
     Dates: start: 20070501, end: 20090420
  2. TYSABRI [Suspect]
     Route: 042
     Dates: start: 20090529, end: 20090601
  3. MINIRIN [Concomitant]
     Indication: ENURESIS
     Dates: start: 20071029
  4. CIALIS [Concomitant]
     Indication: ERECTILE DYSFUNCTION
     Dates: start: 20070101

REACTIONS (3)
  - IMMUNE RECONSTITUTION SYNDROME [None]
  - MENINGITIS HERPES [None]
  - PROGRESSIVE MULTIFOCAL LEUKOENCEPHALOPATHY [None]
